FAERS Safety Report 7200728-4 (Version None)
Quarter: 2010Q4

REPORT INFORMATION
  Report Type: 
  Country: None (occurrence: None)
  Receive Date: 20101228
  Receipt Date: 20101220
  Transmission Date: 20110411
  Serious: Yes (Death)
  Sender: FDA-Public Use
  Company Number: CA-GENZYME-CERZ-1001365

PATIENT
  Sex: Male
  Weight: 9.1 kg

DRUGS (2)
  1. CEREZYME [Suspect]
     Indication: GAUCHER'S DISEASE
     Dosage: 60 U/KG, Q2W
     Route: 042
     Dates: start: 20090812, end: 20100610
  2. CEREZYME [Suspect]
     Dosage: 60 U, Q2W
     Route: 042
     Dates: start: 20090513

REACTIONS (1)
  - DEATH [None]
